FAERS Safety Report 17696562 (Version 1)
Quarter: 2020Q2

REPORT INFORMATION
  Report Type: Spontaneous
  Country: NL (occurrence: NL)
  Receive Date: 20200423
  Receipt Date: 20200423
  Transmission Date: 20200714
  Serious: Yes (Death, Hospitalization)
  Sender: FDA-Public Use
  Company Number: NL-AUROBINDO-AUR-APL-2020-013201

PATIENT
  Age: 24 Year
  Sex: Male

DRUGS (5)
  1. OXYCODONE [Suspect]
     Active Substance: OXYCODONE
     Dosage: 40 MILLIGRAM, ONCE A DAY
     Dates: start: 20160324, end: 20160410
  2. OXYCODONE [Suspect]
     Active Substance: OXYCODONE
     Dosage: INCREASED
     Route: 065
     Dates: start: 20160412
  3. OXYCODONE [Suspect]
     Active Substance: OXYCODONE
     Indication: PAIN
     Dosage: 20 MILLIGRAM, ONCE A DAY
     Route: 065
     Dates: start: 20160316, end: 20160324
  4. OXYCODONE [Suspect]
     Active Substance: OXYCODONE
     Dosage: PHASED OUT
     Route: 065
     Dates: start: 20160410, end: 20160412
  5. PARACETAMOL [Suspect]
     Active Substance: ACETAMINOPHEN
     Indication: PAIN
     Dosage: 3000 MILLIGRAM, ONCE A DAY
     Route: 065
     Dates: start: 20160316

REACTIONS (5)
  - Confusional state [Unknown]
  - Condition aggravated [Unknown]
  - Weight decreased [Unknown]
  - Death [Fatal]
  - Somnolence [Unknown]

NARRATIVE: CASE EVENT DATE: 20160415
